FAERS Safety Report 5741429-9 (Version None)
Quarter: 2008Q2

REPORT INFORMATION
  Report Type: 
  Country: None (occurrence: None)
  Receive Date: 20080514
  Receipt Date: 20080505
  Transmission Date: 20081010
  Serious: Yes (Other)
  Sender: FDA-Public Use
  Company Number: 100#08#2008-02624

PATIENT
  Age: 63 Year
  Sex: Female

DRUGS (2)
  1. LEFLUNOMIDE [Suspect]
     Indication: SJOGREN'S SYNDROME
     Dosage: 20 MG
  2. PREDNISONE TAB [Concomitant]

REACTIONS (1)
  - DRUG RASH WITH EOSINOPHILIA AND SYSTEMIC SYMPTOMS [None]
